FAERS Safety Report 17081590 (Version 1)
Quarter: 2019Q4

REPORT INFORMATION
  Report Type: Spontaneous
  Country: US (occurrence: US)
  Receive Date: 20191126
  Receipt Date: 20191126
  Transmission Date: 20200122
  Serious: Yes (Hospitalization)
  Sender: FDA-Public Use
  Company Number: None

PATIENT
  Sex: Male

DRUGS (22)
  1. LISINOPRIL. [Concomitant]
     Active Substance: LISINOPRIL
  2. GLIMPERIDE [Concomitant]
     Active Substance: GLIMEPIRIDE
  3. METFORMIN [Concomitant]
     Active Substance: METFORMIN HYDROCHLORIDE
  4. ROSUVASTATIN. [Concomitant]
     Active Substance: ROSUVASTATIN
  5. TENORMIN [Concomitant]
     Active Substance: ATENOLOL
  6. MELOXICAM. [Concomitant]
     Active Substance: MELOXICAM
  7. LANTUS [Concomitant]
     Active Substance: INSULIN GLARGINE
  8. LATANOPROST. [Concomitant]
     Active Substance: LATANOPROST
  9. ENBREL [Suspect]
     Active Substance: ETANERCEPT
     Indication: PSORIATIC ARTHROPATHY
     Dosage: ?          OTHER FREQUENCY:TWICE WEEKLY;?
     Route: 058
     Dates: start: 20151023
  10. AMLODIPINE [Concomitant]
     Active Substance: AMLODIPINE BESYLATE
  11. CRESTOR [Concomitant]
     Active Substance: ROSUVASTATIN CALCIUM
  12. HUMALOG [Concomitant]
     Active Substance: INSULIN LISPRO
  13. NAPROXEN. [Concomitant]
     Active Substance: NAPROXEN
  14. BISACODYL. [Concomitant]
     Active Substance: BISACODYL
  15. CEPODOXIME [Concomitant]
  16. NORVASC [Concomitant]
     Active Substance: AMLODIPINE BESYLATE
  17. TIMOLOL. [Concomitant]
     Active Substance: TIMOLOL
  18. BETMOL [Concomitant]
  19. CYCLOBENZAPR [Concomitant]
     Active Substance: CYCLOBENZAPRINE
  20. ISTALOL [Concomitant]
     Active Substance: TIMOLOL MALEATE
  21. LEVAQUIN [Concomitant]
     Active Substance: LEVOFLOXACIN
  22. TAMSULOSIN [Concomitant]
     Active Substance: TAMSULOSIN

REACTIONS (2)
  - Hospitalisation [None]
  - Therapy cessation [None]
